FAERS Safety Report 9779209 (Version 2)
Quarter: 2013Q4

REPORT INFORMATION
  Report Type: Spontaneous
  Country: US (occurrence: US)
  Receive Date: 20131223
  Receipt Date: 20131223
  Transmission Date: 20140711
  Serious: No
  Sender: FDA-Public Use
  Company Number: US-ENDO PHARMACEUTICALS INC.-OPCR20130110

PATIENT
  Age: 36 Year
  Sex: Male

DRUGS (5)
  1. OPANA ER [Suspect]
     Route: 048
     Dates: start: 2013
  2. OPANA ER [Suspect]
     Route: 048
     Dates: start: 201211, end: 201212
  3. OPANA ER [Suspect]
     Route: 048
     Dates: start: 2013
  4. OPANA ER [Suspect]
     Route: 048
     Dates: start: 20121228, end: 2013
  5. TRAZODONE [Concomitant]
     Indication: INSOMNIA
     Dosage: UNK
     Route: 065

REACTIONS (4)
  - Inappropriate schedule of drug administration [Not Recovered/Not Resolved]
  - Withdrawal syndrome [Recovered/Resolved]
  - Drug effect decreased [Not Recovered/Not Resolved]
  - Drug tolerance [Not Recovered/Not Resolved]
